FAERS Safety Report 6068893-2 (Version None)
Quarter: 2009Q1

REPORT INFORMATION
  Report Type: 
  Country: None (occurrence: None)
  Receive Date: 20090206
  Receipt Date: 20090127
  Transmission Date: 20090719
  Serious: Yes (Other)
  Sender: FDA-Public Use
  Company Number: US-ELI_LILLY_AND_COMPANY-US200901004722

PATIENT
  Sex: Male
  Weight: 148.75 kg

DRUGS (3)
  1. BYETTA [Suspect]
     Indication: TYPE 2 DIABETES MELLITUS
     Dosage: 5 UG, 2/D
     Route: 058
     Dates: start: 20070101
  2. BYETTA [Suspect]
     Dosage: 10 UG, 2/D
     Route: 058
  3. INSULIN [Concomitant]
     Indication: TYPE 2 DIABETES MELLITUS

REACTIONS (12)
  - BLOOD TESTOSTERONE DECREASED [None]
  - DYSPNOEA [None]
  - HEADACHE [None]
  - JOINT STIFFNESS [None]
  - LUNG DISORDER [None]
  - LYMPHADENOPATHY [None]
  - MUSCULOSKELETAL STIFFNESS [None]
  - NECK PAIN [None]
  - PAIN IN JAW [None]
  - SLEEP APNOEA SYNDROME [None]
  - THROAT TIGHTNESS [None]
  - WEIGHT DECREASED [None]
